FAERS Safety Report 20038781 (Version 2)
Quarter: 2021Q4

REPORT INFORMATION
  Report Type: Spontaneous
  Country: US (occurrence: US)
  Receive Date: 20211105
  Receipt Date: 20211223
  Transmission Date: 20220303
  Serious: Yes (Hospitalization)
  Sender: FDA-Public Use
  Company Number: US-JUBILANT CADISTA PHARMACEUTICALS-2021JUB00391

PATIENT
  Sex: Female
  Weight: 102.06 kg

DRUGS (18)
  1. LOSARTAN POTASSIUM AND HYDROCHLOROTHIAZIDE [Suspect]
     Active Substance: HYDROCHLOROTHIAZIDE\LOSARTAN POTASSIUM
     Indication: Blood pressure abnormal
     Dosage: 1 TABLETS, 1X/DAY
     Route: 048
  2. UNSPECIFIED ^MILD^ MUSCLE ANXIETY MEDICATION [Concomitant]
     Dosage: AT NIGHT
  3. ZOLOFT [Concomitant]
     Active Substance: SERTRALINE HYDROCHLORIDE
     Dosage: 50 MG, 1X/DAY
     Route: 048
     Dates: start: 20210823
  4. PREMARIN [Concomitant]
     Active Substance: ESTROGENS, CONJUGATED
     Dosage: UNK, 3X/WEEK APPLY 0.5 GMS (LARGE PEA SIZE AMOUNT) IN VAGINA 3 TIMES A WEEK AT NIGHT. DO NOT USE APP
     Route: 067
     Dates: start: 20210823, end: 20211130
  5. UNSPECIFIED INGREDIENT [Concomitant]
     Active Substance: UNSPECIFIED INGREDIENT
  6. ELIQUIS [Concomitant]
     Active Substance: APIXABAN
     Dosage: 5 MG, 2X/DAY
     Route: 048
     Dates: start: 20210823
  7. VOLTAREN 1% TOPICAL GEL [Concomitant]
     Dosage: UNK, AS DIRECTED
     Dates: start: 20191204, end: 20211130
  8. EPIPEN (2 PAK) [Concomitant]
     Dosage: 0.3 MG, AS DIRECTED
     Route: 030
     Dates: start: 20190429
  9. PREMARIN [Concomitant]
     Active Substance: ESTROGENS, CONJUGATED
     Dosage: 0.625 MG, 1X/DAY
     Route: 048
     Dates: start: 20210823, end: 20211130
  10. ALLEGRA ALLERGY [Concomitant]
     Active Substance: FEXOFENADINE HYDROCHLORIDE
     Dosage: 180 MG, 1X/DAY
     Route: 048
     Dates: start: 20210823
  11. FLONASE [Concomitant]
     Active Substance: FLUTICASONE PROPIONATE
     Dosage: 2 SPRAYS IN EACH NOSTRIL, 1X/DAY
     Dates: start: 20211203
  12. LASIX [Concomitant]
     Active Substance: FUROSEMIDE
     Dosage: 20 MG, AS NEEDED
     Route: 048
     Dates: start: 20210709
  13. ATIVAN [Concomitant]
     Active Substance: LORAZEPAM
     Dosage: 1 MG, 2X/DAY IF NEEDED
     Dates: start: 20210823, end: 20211130
  14. ANTIVERT [Concomitant]
     Active Substance: MECLIZINE HYDROCHLORIDE
     Dosage: 12.5 MG, 1X/DAY AS NEEDED
     Dates: start: 20180330
  15. SINGULAIR [Concomitant]
     Active Substance: MONTELUKAST SODIUM
     Dosage: 10 MG, 1X/DAY
     Route: 048
     Dates: start: 20210823
  16. ACIPHEX [Concomitant]
     Active Substance: RABEPRAZOLE SODIUM
     Dosage: 20 MG, 1X/DAY
     Route: 048
     Dates: start: 20210823
  17. BETABACE [Concomitant]
     Dosage: 40 MG (1/2 TABLET), 2X/DAY IN THE MORNING AND AT BEDTIME
     Dates: start: 20210709
  18. ZANAFLEX [Concomitant]
     Active Substance: TIZANIDINE HYDROCHLORIDE
     Dosage: 4 MG, EVERY 6 HOURS AS NEEDED
     Route: 048
     Dates: start: 20190212

REACTIONS (9)
  - Knee arthroplasty [Unknown]
  - Fall [Not Recovered/Not Resolved]
  - Device physical property issue [Recovered/Resolved]
  - Arthralgia [Unknown]
  - Skin abrasion [Unknown]
  - Musculoskeletal discomfort [Recovering/Resolving]
  - Middle insomnia [Not Recovered/Not Resolved]
  - Dizziness postural [Recovered/Resolved]
  - Musculoskeletal chest pain [Unknown]

NARRATIVE: CASE EVENT DATE: 20180101
